FAERS Safety Report 21296534 (Version 1)
Quarter: 2022Q3

REPORT INFORMATION
  Report Type: Other
  Country: NG (occurrence: None)
  Receive Date: 20220906
  Receipt Date: 20220906
  Transmission Date: 20221026
  Serious: Yes (Death)
  Sender: FDA-Public Use
  Company Number: NG-ROCHE-3021390

PATIENT
  Age: 39 Year
  Sex: Female
  Weight: 46 kg

DRUGS (3)
  1. AVASTIN [Suspect]
     Active Substance: BEVACIZUMAB
     Indication: Colorectal cancer metastatic
     Dosage: ROUTE  INJECTION
     Route: 065
  2. AVASTIN [Suspect]
     Active Substance: BEVACIZUMAB
     Route: 042
  3. XELODA [Suspect]
     Active Substance: CAPECITABINE
     Indication: Neoplasm malignant
     Route: 048

REACTIONS (8)
  - Death [Fatal]
  - Vomiting [Recovering/Resolving]
  - Hyperhidrosis [Recovering/Resolving]
  - Pyrexia [Recovering/Resolving]
  - Asthenia [Not Recovered/Not Resolved]
  - Drug intolerance [Unknown]
  - Off label use [Unknown]
  - Off label use [Unknown]

NARRATIVE: CASE EVENT DATE: 20220205
